FAERS Safety Report 21415714 (Version 1)
Quarter: 2022Q4

REPORT INFORMATION
  Report Type: Spontaneous
  Country: US (occurrence: US)
  Receive Date: 20221006
  Receipt Date: 20221006
  Transmission Date: 20230112
  Serious: No
  Sender: FDA-Public Use
  Company Number: US-GILEAD-2022-0600251

PATIENT
  Age: 39 Year
  Sex: Male

DRUGS (1)
  1. EPCLUSA [Suspect]
     Active Substance: SOFOSBUVIR\VELPATASVIR
     Indication: Product used for unknown indication
     Dosage: 2 DOSAGE FORM, QD
     Route: 065

REACTIONS (1)
  - Overdose [Not Recovered/Not Resolved]

NARRATIVE: CASE EVENT DATE: 20220920
